FAERS Safety Report 12201739 (Version 1)
Quarter: 2016Q1

REPORT INFORMATION
  Report Type: Spontaneous
  Country: US (occurrence: US)
  Receive Date: 20160322
  Receipt Date: 20160322
  Transmission Date: 20160526
  Serious: No
  Sender: FDA-Public Use
  Company Number: US-SA-2016SA021065

PATIENT
  Age: 75 Year
  Sex: Female

DRUGS (1)
  1. NASACORT ALLERGY 24HR [Suspect]
     Active Substance: TRIAMCINOLONE ACETONIDE
     Indication: NASAL CONGESTION
     Dosage: PRODUCT START DATE 5 DAY AGO
     Route: 065

REACTIONS (5)
  - Ageusia [Unknown]
  - Cough [Unknown]
  - Drug ineffective [Unknown]
  - Quality of life decreased [Unknown]
  - Anosmia [Unknown]
